FAERS Safety Report 5849626-9 (Version None)
Quarter: 2008Q3

REPORT INFORMATION
  Report Type: 
  Country: None (occurrence: None)
  Receive Date: 20080819
  Receipt Date: 20080811
  Transmission Date: 20090109
  Serious: Yes (Death)
  Sender: FDA-Public Use
  Company Number: JP-AVENTIS-200812017JP

PATIENT
  Age: 49 Year
  Sex: Female
  Weight: 69 kg

DRUGS (11)
  1. TAXOTERE [Suspect]
     Route: 042
     Dates: start: 20080627, end: 20080627
  2. TAXOTERE [Suspect]
     Indication: ASCITES
     Route: 042
     Dates: start: 20080627, end: 20080627
  3. TAXOTERE [Suspect]
     Route: 042
     Dates: start: 20080627, end: 20080627
  4. CARBOPLATIN [Concomitant]
     Route: 042
     Dates: start: 20080627
  5. CARBOPLATIN [Concomitant]
     Indication: ASCITES
     Route: 042
     Dates: start: 20080627
  6. CARBOPLATIN [Concomitant]
     Route: 042
     Dates: start: 20080627
  7. CATACLOT [Concomitant]
     Dates: start: 20080608
  8. GLYCEOL                            /00744501/ [Concomitant]
     Dates: start: 20080608
  9. RADICUT [Concomitant]
     Dates: start: 20080608
  10. DECADRON [Concomitant]
     Indication: PREMEDICATION
  11. RESTAMIN [Concomitant]
     Indication: PREMEDICATION

REACTIONS (1)
  - CEREBRAL INFARCTION [None]
